FAERS Safety Report 10016715 (Version 1)
Quarter: 2014Q1

REPORT INFORMATION
  Report Type: Spontaneous
  Country: US (occurrence: US)
  Receive Date: 20140318
  Receipt Date: 20140318
  Transmission Date: 20141002
  Serious: Yes (Hospitalization, Other)
  Sender: FDA-Public Use
  Company Number: PHHY2014US030605

PATIENT
  Age: 42 Year
  Sex: Male
  Weight: 90 kg

DRUGS (7)
  1. TESTOSTERONE CYPIONATE [Suspect]
     Route: 042
  2. TESTOSTERONE ACETATE [Suspect]
  3. TESTOSTERONE DECANOATE [Suspect]
  4. TESTOSTERONE PROPIONATE [Suspect]
  5. TESTOSTERONE PHENYLPROPIONATE [Suspect]
  6. TESTOSTERONE ENANTHATE [Suspect]
  7. TESTOSTERONE ISOCAPROATE [Suspect]

REACTIONS (27)
  - Renal failure acute [Unknown]
  - Oedema [Unknown]
  - Blood pressure decreased [Unknown]
  - Oliguria [Unknown]
  - Fluid overload [Unknown]
  - Blood urea increased [Unknown]
  - Blood creatinine increased [Unknown]
  - Blood bilirubin increased [Unknown]
  - Acute respiratory distress syndrome [Unknown]
  - Hypoxia [Unknown]
  - Dyspnoea [Unknown]
  - Lung infiltration [Unknown]
  - Productive cough [Unknown]
  - Hepatic function abnormal [Unknown]
  - Aspartate aminotransferase increased [Unknown]
  - Alanine aminotransferase increased [Unknown]
  - Supraventricular tachycardia [Unknown]
  - Atrial flutter [Unknown]
  - Multi-organ failure [Unknown]
  - Blood glucose increased [Unknown]
  - Diarrhoea [Unknown]
  - Nausea [Recovered/Resolved]
  - Vomiting [Recovered/Resolved]
  - Hepatic congestion [Unknown]
  - Pleural effusion [Unknown]
  - Brain natriuretic peptide increased [Unknown]
  - Drug abuse [Unknown]
